FAERS Safety Report 9891862 (Version 9)
Quarter: 2014Q3

REPORT INFORMATION
  Report Type: Report from Study
  Country: US (occurrence: US)
  Receive Date: 20140212
  Receipt Date: 20140709
  Transmission Date: 20150326
  Serious: Yes (Other)
  Sender: FDA-Public Use
  Company Number: US-BAYER-2014-021137

PATIENT
  Age: 76 Year
  Sex: Male

DRUGS (5)
  1. STIVARGA [Suspect]
     Active Substance: REGORAFENIB
     Indication: METASTASES TO PROSTATE
     Dosage: 80 MG, QD
     Route: 048
     Dates: start: 20140519, end: 20140623
  2. STIVARGA [Suspect]
     Active Substance: REGORAFENIB
     Indication: METASTASES TO LIVER
     Dosage: 160 MG, (40 MG X 4) QD
     Route: 048
     Dates: start: 20140228, end: 20140327
  3. STIVARGA [Suspect]
     Active Substance: REGORAFENIB
     Indication: METASTASES TO CENTRAL NERVOUS SYSTEM
  4. STIVARGA [Suspect]
     Active Substance: REGORAFENIB
     Indication: COLON CANCER
     Dosage: 160 MG, (40 MG X 4) QD
     Route: 048
     Dates: start: 20140124, end: 20140207
  5. STIVARGA [Suspect]
     Active Substance: REGORAFENIB
     Indication: METASTASES TO BONE

REACTIONS (4)
  - Blister [Not Recovered/Not Resolved]
  - Headache [None]
  - Blister [None]
  - Gait disturbance [None]

NARRATIVE: CASE EVENT DATE: 20140205
